FAERS Safety Report 4280194-1 (Version None)
Quarter: 2004Q1

REPORT INFORMATION
  Report Type: 
  Country: None (occurrence: None)
  Receive Date: 20040126
  Receipt Date: 20040113
  Transmission Date: 20041129
  Serious: Yes (Hospitalization)
  Sender: FDA-Public Use
  Company Number: A200422

PATIENT
  Age: 49 Year
  Sex: Female
  Weight: 91.173 kg

DRUGS (3)
  1. GEODON [Suspect]
     Indication: SCHIZOPHRENIA
     Dosage: 20 MG (DAILY), ORAL
     Route: 048
     Dates: start: 20010906
  2. CLOZAPINE [Suspect]
     Indication: ILL-DEFINED DISORDER
     Dosage: (DAILY)
  3. METAMUCIL-2 [Concomitant]

REACTIONS (10)
  - BALANCE DISORDER [None]
  - DIZZINESS [None]
  - DYSPEPSIA [None]
  - FATIGUE [None]
  - FEELING HOT [None]
  - INSOMNIA [None]
  - LARYNGITIS [None]
  - NASOPHARYNGITIS [None]
  - VISUAL DISTURBANCE [None]
  - VOMITING [None]
